FAERS Safety Report 9687586 (Version 3)
Quarter: 2013Q4

REPORT INFORMATION
  Report Type: Spontaneous
  Country: US (occurrence: US)
  Receive Date: 20131114
  Receipt Date: 20131213
  Transmission Date: 20140711
  Serious: Yes (Other)
  Sender: FDA-Public Use
  Company Number: US-AMGEN-USASP2013076166

PATIENT
  Age: 60 Year
  Sex: Female

DRUGS (2)
  1. ENBREL [Suspect]
     Indication: RHEUMATOID ARTHRITIS
     Dosage: 50 MG, QWK
     Route: 058
     Dates: start: 20131010
  2. ENBREL [Suspect]
     Dosage: UNK
     Route: 065

REACTIONS (10)
  - Cystitis [Recovered/Resolved]
  - Hypoaesthesia [Not Recovered/Not Resolved]
  - Fatigue [Not Recovered/Not Resolved]
  - Chills [Recovered/Resolved]
  - Musculoskeletal discomfort [Unknown]
  - Muscle twitching [Recovering/Resolving]
  - Melanocytic naevus [Unknown]
  - Lymphadenopathy [Recovered/Resolved]
  - Sinusitis [Unknown]
  - Injection site pain [Not Recovered/Not Resolved]
